FAERS Safety Report 4775806-X (Version None)
Quarter: 2005Q3

REPORT INFORMATION
  Report Type: 
  Country: None (occurrence: None)
  Receive Date: 20050922
  Receipt Date: 20050915
  Transmission Date: 20060218
  Serious: Yes (Hospitalization)
  Sender: FDA-Public Use
  Company Number: GB-MERCK-0509GBR00096

PATIENT
  Age: 67 Year
  Sex: Male

DRUGS (3)
  1. ZOCOR [Suspect]
     Route: 048
     Dates: start: 20050806, end: 20050824
  2. ASPIRIN [Concomitant]
     Indication: TRANSIENT ISCHAEMIC ATTACK
     Route: 048
     Dates: start: 20040801
  3. BETAMETHASONE VALERATE AND FUSIDIC ACID [Concomitant]
     Indication: RASH
     Route: 061
     Dates: start: 20050701

REACTIONS (2)
  - EYE SWELLING [None]
  - RASH GENERALISED [None]
